FAERS Safety Report 10681113 (Version 1)
Quarter: 2014Q4

REPORT INFORMATION
  Report Type: Spontaneous
  Country: NO (occurrence: NO)
  Receive Date: 20141229
  Receipt Date: 20141229
  Transmission Date: 20150529
  Serious: Yes (Other)
  Sender: FDA-Public Use
  Company Number: PHHY2014NO166723

PATIENT
  Sex: Male

DRUGS (1)
  1. ATORVASTATIN [Suspect]
     Active Substance: ATORVASTATIN
     Indication: ARTERIOSCLEROSIS
     Dosage: 40 MG, QD LATER 60 MG DAILY UNTIL GRADUALLY REDUCED DOSE BEFORE WITHDRAWAL
     Route: 048
     Dates: start: 2013, end: 20140710

REACTIONS (1)
  - Gout [Recovering/Resolving]

NARRATIVE: CASE EVENT DATE: 20140602
